FAERS Safety Report 5301833-X (Version None)
Quarter: 2007Q2

REPORT INFORMATION
  Report Type: 
  Country: None (occurrence: None)
  Receive Date: 20070416
  Receipt Date: 20070416
  Transmission Date: 20071010
  Serious: Yes (Other)
  Sender: FDA-Public Use
  Company Number: None

PATIENT
  Sex: Female
  Weight: 74.3899 kg

DRUGS (1)
  1. PAROXETINE 60 MG [Suspect]
     Indication: SOCIAL PHOBIA
     Dosage: 60 MG DAILY PO
     Route: 048
     Dates: start: 20001001, end: 20070409

REACTIONS (7)
  - ANGER [None]
  - DIZZINESS [None]
  - HEADACHE [None]
  - NIGHT SWEATS [None]
  - PHARMACEUTICAL PRODUCT COMPLAINT [None]
  - STOMACH DISCOMFORT [None]
  - VISION BLURRED [None]
